FAERS Safety Report 7610579-4 (Version None)
Quarter: 2011Q3

REPORT INFORMATION
  Report Type: 
  Country: None (occurrence: None)
  Receive Date: 20110715
  Receipt Date: 20110713
  Transmission Date: 20111222
  Serious: No
  Sender: FDA-Public Use
  Company Number: US-TEVA-290470USA

PATIENT
  Sex: Female
  Weight: 54.48 kg

DRUGS (2)
  1. BUDESONIDE W/FORMOTEROL FUMARATE [Concomitant]
     Indication: ASTHMA
  2. PROAIR HFA [Suspect]
     Indication: ASTHMA
     Route: 055

REACTIONS (3)
  - DYSPNOEA [None]
  - RETCHING [None]
  - THROAT TIGHTNESS [None]
